FAERS Safety Report 25239964 (Version 1)
Quarter: 2025Q2

REPORT INFORMATION
  Report Type: Spontaneous
  Country: US (occurrence: US)
  Receive Date: 20250425
  Receipt Date: 20250425
  Transmission Date: 20250716
  Serious: Yes (Other)
  Sender: MYLAN
  Company Number: US-MYLANLABS-2025M1035761

PATIENT
  Age: 42 Year
  Sex: Male

DRUGS (28)
  1. LEUCOVORIN [Suspect]
     Active Substance: LEUCOVORIN\LEUCOVORIN CALCIUM
     Indication: Signet-ring cell carcinoma
  2. LEUCOVORIN [Suspect]
     Active Substance: LEUCOVORIN\LEUCOVORIN CALCIUM
  3. LEUCOVORIN [Suspect]
     Active Substance: LEUCOVORIN\LEUCOVORIN CALCIUM
     Route: 065
  4. LEUCOVORIN [Suspect]
     Active Substance: LEUCOVORIN\LEUCOVORIN CALCIUM
     Route: 065
  5. LEUCOVORIN [Suspect]
     Active Substance: LEUCOVORIN\LEUCOVORIN CALCIUM
  6. LEUCOVORIN [Suspect]
     Active Substance: LEUCOVORIN\LEUCOVORIN CALCIUM
  7. LEUCOVORIN [Suspect]
     Active Substance: LEUCOVORIN\LEUCOVORIN CALCIUM
     Route: 065
  8. LEUCOVORIN [Suspect]
     Active Substance: LEUCOVORIN\LEUCOVORIN CALCIUM
     Route: 065
  9. OXALIPLATIN [Suspect]
     Active Substance: OXALIPLATIN
     Indication: Signet-ring cell carcinoma
  10. OXALIPLATIN [Suspect]
     Active Substance: OXALIPLATIN
     Route: 065
  11. OXALIPLATIN [Suspect]
     Active Substance: OXALIPLATIN
     Route: 065
  12. OXALIPLATIN [Suspect]
     Active Substance: OXALIPLATIN
  13. FLUOROURACIL [Suspect]
     Active Substance: FLUOROURACIL
     Indication: Signet-ring cell carcinoma
  14. FLUOROURACIL [Suspect]
     Active Substance: FLUOROURACIL
  15. FLUOROURACIL [Suspect]
     Active Substance: FLUOROURACIL
     Route: 065
  16. FLUOROURACIL [Suspect]
     Active Substance: FLUOROURACIL
     Route: 065
  17. FLUOROURACIL [Suspect]
     Active Substance: FLUOROURACIL
  18. FLUOROURACIL [Suspect]
     Active Substance: FLUOROURACIL
  19. FLUOROURACIL [Suspect]
     Active Substance: FLUOROURACIL
     Route: 065
  20. FLUOROURACIL [Suspect]
     Active Substance: FLUOROURACIL
     Route: 065
  21. IRINOTECAN [Suspect]
     Active Substance: IRINOTECAN
     Indication: Signet-ring cell carcinoma
  22. IRINOTECAN [Suspect]
     Active Substance: IRINOTECAN
     Route: 065
  23. IRINOTECAN [Suspect]
     Active Substance: IRINOTECAN
     Route: 065
  24. IRINOTECAN [Suspect]
     Active Substance: IRINOTECAN
  25. BEVACIZUMAB [Suspect]
     Active Substance: BEVACIZUMAB
     Indication: Signet-ring cell carcinoma
  26. BEVACIZUMAB [Suspect]
     Active Substance: BEVACIZUMAB
     Route: 065
  27. BEVACIZUMAB [Suspect]
     Active Substance: BEVACIZUMAB
     Route: 065
  28. BEVACIZUMAB [Suspect]
     Active Substance: BEVACIZUMAB

REACTIONS (3)
  - Disease progression [Unknown]
  - Drug ineffective for unapproved indication [Unknown]
  - Off label use [Unknown]
